FAERS Safety Report 8607428 (Version 3)
Quarter: 2014Q2

REPORT INFORMATION
  Report Type: Spontaneous
  Country: US (occurrence: US)
  Receive Date: 20120611
  Receipt Date: 20140425
  Transmission Date: 20141212
  Serious: No
  Sender: FDA-Public Use
  Company Number: US-ASTRAZENECA-2012SE34998

PATIENT
  Age: 31 Year
  Sex: Female
  Weight: 56.7 kg

DRUGS (11)
  1. NEXIUM [Suspect]
     Indication: GASTROOESOPHAGEAL REFLUX DISEASE
     Dosage: ONCE EVERY DAY
     Route: 048
     Dates: start: 2005, end: 2011
  2. NEXIUM [Suspect]
     Indication: GASTROOESOPHAGEAL REFLUX DISEASE
     Dosage: ONCE EVERY DAY
     Route: 048
     Dates: start: 2005, end: 2011
  3. NEXIUM [Suspect]
     Indication: GASTROOESOPHAGEAL REFLUX DISEASE
     Route: 048
     Dates: start: 20060113
  4. NEXIUM [Suspect]
     Indication: GASTROOESOPHAGEAL REFLUX DISEASE
     Route: 048
     Dates: start: 20060113
  5. NEXIUM [Suspect]
     Indication: GASTROOESOPHAGEAL REFLUX DISEASE
     Route: 048
     Dates: start: 20110922
  6. NEXIUM [Suspect]
     Indication: GASTROOESOPHAGEAL REFLUX DISEASE
     Route: 048
     Dates: start: 20110922
  7. PRILOSEC [Suspect]
     Route: 048
  8. TUMS [Concomitant]
  9. CALCIUM [Concomitant]
  10. CALCITONIN-SALMON [Concomitant]
  11. CALCITONIN-SALMON [Concomitant]
     Dates: start: 20110822

REACTIONS (6)
  - Osteoporosis [Unknown]
  - Bone density decreased [Unknown]
  - Bone disorder [Unknown]
  - Carpal tunnel syndrome [Unknown]
  - Multiple fractures [Unknown]
  - Osteopenia [Unknown]
